FAERS Safety Report 9418650 (Version 3)
Quarter: 2013Q4

REPORT INFORMATION
  Report Type: Spontaneous
  Country: IT (occurrence: IT)
  Receive Date: 20130725
  Receipt Date: 20131118
  Transmission Date: 20140711
  Serious: Yes (Disabling)
  Sender: FDA-Public Use
  Company Number: IT-SHIRE-ALL1-2013-04855

PATIENT
  Age: 73 Year
  Sex: Male

DRUGS (1)
  1. XAGRID [Suspect]
     Indication: ESSENTIAL THROMBOCYTHAEMIA
     Dosage: 1 MG, 1X/DAY:QD
     Route: 048
     Dates: start: 2011

REACTIONS (1)
  - Squamous cell carcinoma of the tongue [Recovered/Resolved with Sequelae]
